FAERS Safety Report 24702560 (Version 2)
Quarter: 2024Q4

REPORT INFORMATION
  Report Type: Spontaneous
  Country: US (occurrence: US)
  Receive Date: 20241205
  Receipt Date: 20241219
  Transmission Date: 20250115
  Serious: Yes (Hospitalization)
  Sender: TEVA
  Company Number: US-TEVA-VS-3271130

PATIENT
  Age: 70 Year
  Sex: Male

DRUGS (2)
  1. EPINEPHRINE [Suspect]
     Active Substance: EPINEPHRINE
     Indication: Anaphylactic reaction
     Route: 030
  2. VANCOMYCIN [Suspect]
     Active Substance: VANCOMYCIN
     Indication: Evidence based treatment
     Route: 065

REACTIONS (9)
  - Anaphylactic reaction [Unknown]
  - Haemorrhage intracranial [Unknown]
  - Blood pressure increased [Recovered/Resolved]
  - Swollen tongue [Unknown]
  - Bradycardia [Unknown]
  - Hypoxia [Unknown]
  - Dyspnoea [Unknown]
  - Mental status changes [Unknown]
  - Swelling face [Unknown]
